FAERS Safety Report 4324738-X (Version None)
Quarter: 2004Q1

REPORT INFORMATION
  Report Type: 
  Country: None (occurrence: None)
  Receive Date: 20040326
  Receipt Date: 20030609
  Transmission Date: 20041129
  Serious: Yes (Hospitalization, Disabling)
  Sender: FDA-Public Use
  Company Number: WAES 0306USA01224

PATIENT
  Age: 64 Year
  Sex: Male
  Weight: 103 kg

DRUGS (33)
  1. TETRACYCLINE [Concomitant]
     Indication: EYE INFECTION
  2. AMBIEN [Concomitant]
     Indication: SLEEP DISORDER
  3. [THERAPY UNSPECIFIED] [Concomitant]
  4. TYLENOL (CAPLET) [Concomitant]
     Indication: PAIN
     Dates: start: 19990101, end: 20040101
  5. ACETAMINOPHEN AND HYDROCODONE BITARTRATE [Concomitant]
     Indication: PAIN
  6. ACETIC ACID [Concomitant]
     Indication: ABDOMINAL PAIN UPPER
     Route: 001
  7. ALBUTEROL [Concomitant]
     Indication: HYPERSENSITIVITY
  8. AMLODIPINE MALEATE [Concomitant]
     Dates: start: 20011201
  9. ASPIRIN [Concomitant]
     Indication: PROPHYLAXIS
     Dates: start: 20011201
  10. BACLOFEN [Concomitant]
     Indication: MUSCLE SPASMS
  11. BECONASE [Concomitant]
     Indication: HYPERSENSITIVITY
  12. ARTIFICIAL TEARS [Concomitant]
  13. BUPROPION HYDROCHLORIDE [Concomitant]
     Indication: DEPRESSION
     Dates: start: 20000401, end: 20030301
  14. CARBAMIDE PEROXIDE [Concomitant]
     Indication: EAR DISORDER
  15. CLOPIDOGREL BISULFATE [Concomitant]
     Indication: CARDIAC DISORDER
  16. CLOTRIMAZOLE [Concomitant]
  17. PROZAC [Concomitant]
     Indication: DEPRESSION
  18. NEURONTIN [Concomitant]
     Indication: NEURALGIA
  19. ADVIL [Concomitant]
     Indication: PAIN
     Dates: start: 19990101, end: 20040101
  20. LANSOPRAZOLE [Concomitant]
     Indication: PEPTIC ULCER
     Dates: start: 20020201
  21. LOVASTATIN [Concomitant]
  22. METHOCARBAMOL [Concomitant]
     Indication: MYALGIA
  23. METOPROLOL [Concomitant]
     Indication: DEPRESSION
     Dates: start: 20011201
  24. MIRTAZAPINE [Concomitant]
     Indication: DEPRESSION
  25. NITROGLYCERIN [Concomitant]
     Indication: CHEST PAIN
  26. NYSTATIN [Concomitant]
     Indication: RASH
  27. OLOPATADINE HYDROCHLORIDE [Concomitant]
     Indication: EYE DISORDER
     Route: 047
  28. PHENYLPROPANOLAMINE [Concomitant]
     Indication: NASOPHARYNGITIS
  29. PSEUDOEPHEDRINE [Concomitant]
     Indication: HYPERSENSITIVITY
  30. RABEPRAZOLE SODIUM [Concomitant]
     Indication: PEPTIC ULCER
  31. VIOXX [Suspect]
     Indication: PAIN
     Route: 048
     Dates: start: 20000216, end: 20020423
  32. VIOXX [Suspect]
     Indication: MUSCLE SPASMS
     Route: 048
     Dates: start: 20000216, end: 20020423
  33. ZOCOR [Concomitant]
     Indication: BLOOD CHOLESTEROL ABNORMAL
     Route: 048
     Dates: start: 20011206

REACTIONS (22)
  - ABDOMINAL PAIN UPPER [None]
  - ANGER [None]
  - BLOOD CHOLESTEROL INCREASED [None]
  - CHRONIC OBSTRUCTIVE AIRWAYS DISEASE [None]
  - CORONARY ARTERY DISEASE [None]
  - DEPRESSION [None]
  - DIABETES MELLITUS NON-INSULIN-DEPENDENT [None]
  - EAR DISORDER [None]
  - EMOTIONAL DISTRESS [None]
  - EYE INFECTION [None]
  - FEAR [None]
  - HYPERTENSION [None]
  - MUSCLE SPASMS [None]
  - MYALGIA [None]
  - MYOCARDIAL INFARCTION [None]
  - NASOPHARYNGITIS [None]
  - NEURALGIA [None]
  - OEDEMA PERIPHERAL [None]
  - PAIN [None]
  - PEPTIC ULCER [None]
  - RASH [None]
  - SLEEP DISORDER [None]
